FAERS Safety Report 5630507-0 (Version None)
Quarter: 2008Q1

REPORT INFORMATION
  Report Type: 
  Country: None (occurrence: None)
  Receive Date: 20080219
  Receipt Date: 20080207
  Transmission Date: 20080703
  Serious: Yes (Hospitalization, Other)
  Sender: FDA-Public Use
  Company Number: US-AMGEN-QUU249476

PATIENT
  Sex: Female

DRUGS (2)
  1. ENBREL [Suspect]
     Indication: PSORIATIC ARTHROPATHY
     Route: 058
     Dates: start: 20040101
  2. ENBREL [Suspect]
     Indication: PSORIASIS

REACTIONS (11)
  - ATRIAL FIBRILLATION [None]
  - BRONCHITIS [None]
  - CARDIAC FAILURE CONGESTIVE [None]
  - CLOSTRIDIAL INFECTION [None]
  - CONDITION AGGRAVATED [None]
  - DIZZINESS [None]
  - FALL [None]
  - INJURY [None]
  - PSORIASIS [None]
  - SYNCOPE [None]
  - TIBIA FRACTURE [None]
